FAERS Safety Report 7808943-3 (Version None)
Quarter: 2011Q4

REPORT INFORMATION
  Report Type: 
  Country: None (occurrence: None)
  Receive Date: 20111012
  Receipt Date: 20111010
  Transmission Date: 20120403
  Serious: Yes (Death)
  Sender: FDA-Public Use
  Company Number: DE-BRISTOL-MYERS SQUIBB COMPANY-15997125

PATIENT
  Age: 57 Year
  Sex: Male
  Weight: 63 kg

DRUGS (7)
  1. YERVOY [Suspect]
     Indication: METASTATIC MALIGNANT MELANOMA
     Route: 042
     Dates: start: 20110808, end: 20110808
  2. TORSEMIDE [Concomitant]
     Indication: OEDEMA
     Route: 048
     Dates: start: 20110729, end: 20110816
  3. SPIRONOLACTONE [Concomitant]
     Indication: ASCITES
     Route: 048
     Dates: end: 20110816
  4. CHOLESTYRAMINE [Concomitant]
     Indication: HYPERBILIRUBINAEMIA
     Route: 048
     Dates: start: 20110729, end: 20110816
  5. DEXAMETHASONE [Concomitant]
     Indication: HEPATIC PAIN
     Route: 048
     Dates: start: 20110729, end: 20110816
  6. SPIRONOLACTONE [Concomitant]
     Indication: OEDEMA
     Route: 048
     Dates: end: 20110816
  7. TORSEMIDE [Concomitant]
     Indication: ASCITES
     Route: 048
     Dates: start: 20110729, end: 20110816

REACTIONS (1)
  - NEOPLASM MALIGNANT [None]
